FAERS Safety Report 11977109 (Version 2)
Quarter: 2016Q2

REPORT INFORMATION
  Report Type: Spontaneous
  Country: FR (occurrence: FR)
  Receive Date: 20160129
  Receipt Date: 20160606
  Transmission Date: 20160815
  Serious: Yes (Disabling)
  Sender: FDA-Public Use
  Company Number: FR-PFIZER INC-2016044082

PATIENT
  Age: 81 Year
  Sex: Male

DRUGS (4)
  1. INIPOMP [Suspect]
     Active Substance: PANTOPRAZOLE SODIUM
     Indication: GASTROOESOPHAGEAL REFLUX DISEASE
     Dosage: 1 DF, DAILY
     Route: 048
  2. DOMPERIDONE /00498202/ [Suspect]
     Active Substance: DOMPERIDONE MALEATE
     Indication: GASTROOESOPHAGEAL REFLUX DISEASE
     Dosage: 3 DF, DAILY
     Route: 048
     Dates: end: 20151126
  3. METEOXANE /08328901/ [Suspect]
     Active Substance: DIMETHICONE\PHLOROGLUCINOL
     Indication: GASTROOESOPHAGEAL REFLUX DISEASE
     Dosage: 3 DF, DAILY
     Route: 048
  4. XYZALL [Suspect]
     Active Substance: LEVOCETIRIZINE DIHYDROCHLORIDE
     Indication: HYPERSENSITIVITY
     Dosage: 1 DF, DAILY
     Route: 048

REACTIONS (2)
  - Parkinsonism [Recovered/Resolved]
  - Fall [Recovered/Resolved]

NARRATIVE: CASE EVENT DATE: 201412
